FAERS Safety Report 4990756-1 (Version None)
Quarter: 2006Q2

REPORT INFORMATION
  Report Type: 
  Country: None (occurrence: None)
  Receive Date: 20060428
  Receipt Date: 20060411
  Transmission Date: 20061013
  Serious: Yes (Hospitalization, Other)
  Sender: FDA-Public Use
  Company Number: FR200604001580

PATIENT
  Age: 53 Year
  Sex: Female
  Weight: 60 kg

DRUGS (5)
  1. PROZAC [Suspect]
     Dosage: 20 MG, DAILY (1/D), ORAL
     Route: 048
     Dates: start: 20050701
  2. CRESTOR [Concomitant]
  3. PREVISCAN (FLUINDIONE) [Concomitant]
  4. ZOCOR [Concomitant]
  5. SOTALEX   /BEL/ (SOTALOL HYDROCHLORIDE) [Concomitant]

REACTIONS (5)
  - DRUG INTERACTION [None]
  - HAEMATOMA [None]
  - INTERNATIONAL NORMALISED RATIO DECREASED [None]
  - INTERNATIONAL NORMALISED RATIO INCREASED [None]
  - ISCHAEMIC STROKE [None]
